FAERS Safety Report 9782641 (Version 1)
Quarter: 2013Q4

REPORT INFORMATION
  Report Type: Report from Study
  Country: NL (occurrence: NL)
  Receive Date: 20131226
  Receipt Date: 20131226
  Transmission Date: 20140711
  Serious: Yes (Hospitalization)
  Sender: FDA-Public Use
  Company Number: PHHY2013NL151838

PATIENT
  Sex: Male

DRUGS (3)
  1. ZOMETA [Suspect]
     Indication: PLASMA CELL MYELOMA
     Dosage: 4 MG/100 ML, ONCE PER 4 WEEKS
     Route: 042
  2. ZOMETA [Suspect]
     Dosage: 4 MG/100 ML, ONCE PER 4 WEEKS
     Route: 042
     Dates: start: 20131001
  3. ZOMETA [Suspect]
     Dosage: 4 MG/100 ML, ONCE PER 4 WEEKS
     Route: 042
     Dates: start: 20131128

REACTIONS (1)
  - Pulmonary oedema [Recovering/Resolving]
